FAERS Safety Report 15341359 (Version 4)
Quarter: 2018Q4

REPORT INFORMATION
  Report Type: Spontaneous
  Country: US (occurrence: US)
  Receive Date: 20180831
  Receipt Date: 20181116
  Transmission Date: 20190204
  Serious: Yes (Death, Hospitalization, Other)
  Sender: FDA-Public Use
  Company Number: US-009507513-1808USA009974

PATIENT
  Age: 48 Year
  Sex: Male

DRUGS (1)
  1. PROVENTIL [Suspect]
     Active Substance: ALBUTEROL
     Indication: CHRONIC OBSTRUCTIVE PULMONARY DISEASE
     Dosage: UNK
     Route: 055
     Dates: start: 2015

REACTIONS (7)
  - Renal failure [Recovering/Resolving]
  - Unresponsive to stimuli [Recovering/Resolving]
  - Product quality issue [Unknown]
  - Lung neoplasm malignant [Recovered/Resolved]
  - Product use in unapproved indication [Unknown]
  - Lung neoplasm malignant [Not Recovered/Not Resolved]
  - Death [Fatal]

NARRATIVE: CASE EVENT DATE: 2015
